FAERS Safety Report 10951305 (Version 1)
Quarter: 2015Q1

REPORT INFORMATION
  Report Type: Spontaneous
  Country: US (occurrence: None)
  Receive Date: 20150226
  Receipt Date: 20150226
  Transmission Date: 20150721
  Serious: Yes (Hospitalization)
  Sender: FDA-Public Use
  Company Number: OPTN-PR-0903S-0001

PATIENT
  Age: 48 Year
  Sex: Male
  Weight: 98.88 kg

DRUGS (1)
  1. OPTISON (PERFLUTREN PROTEIN-TYPE A MICROSPHERES) [Suspect]
     Active Substance: HUMAN ALBUMIN MICROSPHERES\PERFLUTREN
     Indication: CARDIOMYOPATHY
     Dosage: 0.5 ML, SINGLE DOSE
     Route: 042
     Dates: start: 20090310, end: 20090310

REACTIONS (3)
  - Fluid overload [None]
  - Hypoxia [None]
  - Ventricular tachycardia [None]

NARRATIVE: CASE EVENT DATE: 20090310
